FAERS Safety Report 22122893 (Version 1)
Quarter: 2023Q1

REPORT INFORMATION
  Report Type: Report from Study
  Country: US (occurrence: US)
  Receive Date: 20230322
  Receipt Date: 20230322
  Transmission Date: 20230417
  Serious: No
  Sender: FDA-Public Use
  Company Number: US-BIOVITRUM-2023-US-01636

PATIENT
  Age: 75 Year
  Sex: Female

DRUGS (2)
  1. KINERET [Suspect]
     Active Substance: ANAKINRA
     Indication: Rheumatoid arthritis
     Dates: start: 20230106
  2. KINERET [Suspect]
     Active Substance: ANAKINRA
     Dates: start: 20230108

REACTIONS (5)
  - Pain [Unknown]
  - Swelling [Unknown]
  - Nasopharyngitis [Unknown]
  - Drug ineffective [Unknown]
  - Injection site pain [Unknown]
